FAERS Safety Report 9638682 (Version 2)
Quarter: 2013Q4

REPORT INFORMATION
  Report Type: Spontaneous
  Country: IT (occurrence: IT)
  Receive Date: 20131022
  Receipt Date: 20131029
  Transmission Date: 20140711
  Serious: Yes (Hospitalization)
  Sender: FDA-Public Use
  Company Number: IT-TEVA-437818ISR

PATIENT
  Age: 81 Year
  Sex: Female

DRUGS (12)
  1. METFORMINA CLORIDRATO [Suspect]
     Indication: TYPE 2 DIABETES MELLITUS
     Dosage: 1 DOSAGE FORMS DAILY;
     Route: 048
     Dates: start: 20120101, end: 20130707
  2. ENALAPRIL MALEATE [Suspect]
     Indication: HYPERTENSION
     Dosage: 1 DOSAGE FORMS DAILY;
     Route: 048
     Dates: start: 20120101, end: 20130707
  3. LASITONE [Suspect]
     Indication: HYPERTENSION
     Dosage: 1 DOSAGE FORMS DAILY; FUROSEMIDE 25MG AND SPIRONOLACTONE 37MG
     Route: 048
     Dates: start: 20120101, end: 20130707
  4. GLIBOMET [Suspect]
     Indication: TYPE 2 DIABETES MELLITUS
     Dosage: 1 MILLIEQUIVALENTS DAILY; METFORMIN 400 MG AND GLIBENCLAMIDE 2.5 MG
     Route: 048
     Dates: start: 20120101, end: 20130707
  5. CATAPRESAN [Concomitant]
  6. MODALINA [Concomitant]
  7. AUGUMENTIN 875/125MG [Concomitant]
     Indication: TOOTH ABSCESS
     Dosage: AMOXICILLIN TRIHYDRATE 875MG AND CLAVULANIC ACID 125MG
  8. PLAVIX 75MG [Concomitant]
     Indication: THROMBOSIS PROPHYLAXIS
  9. ATORVASTATINA CALCIO TRIIDRATO [Concomitant]
     Indication: DYSLIPIDAEMIA
  10. ALLOPURINOLO [Concomitant]
     Indication: HYPERURICAEMIA
  11. BISOPROLOLO EMIFUMARATO [Concomitant]
     Indication: HYPERTENSION
  12. ACIDO ACETILSALICILICO [Concomitant]
     Indication: THROMBOSIS PROPHYLAXIS

REACTIONS (1)
  - Renal failure acute [Recovered/Resolved]
